FAERS Safety Report 5937808-7 (Version None)
Quarter: 2008Q4

REPORT INFORMATION
  Report Type: 
  Country: None (occurrence: None)
  Receive Date: 20081031
  Receipt Date: 20081024
  Transmission Date: 20090506
  Serious: Yes (Hospitalization, Other)
  Sender: FDA-Public Use
  Company Number: TW-AVENTIS-200820115GDDC

PATIENT
  Age: 13 Year
  Sex: Male
  Weight: 67 kg

DRUGS (3)
  1. HYDROCORTISONE [Suspect]
     Route: 042
  2. BETAMETHASONE [Suspect]
     Route: 042
  3. BETAMETHASONE [Suspect]
     Route: 042

REACTIONS (2)
  - LABORATORY TEST ABNORMAL [None]
  - LEUKOCYTOSIS [None]
